FAERS Safety Report 4964522-7 (Version None)
Quarter: 2006Q2

REPORT INFORMATION
  Report Type: 
  Country: None (occurrence: None)
  Receive Date: 20060406
  Receipt Date: 20060329
  Transmission Date: 20061013
  Serious: Yes (Other)
  Sender: FDA-Public Use
  Company Number: US-GLAXOSMITHKLINE-A0600441A

PATIENT
  Sex: Female

DRUGS (7)
  1. ZIDOVUDINE [Suspect]
     Indication: DRUG USE FOR UNKNOWN INDICATION
     Route: 048
  2. ZIDOVUDINE [Suspect]
     Route: 048
  3. LAMIVUDINE [Suspect]
     Indication: DRUG USE FOR UNKNOWN INDICATION
     Route: 048
  4. LAMIVUDINE [Suspect]
     Route: 048
  5. ABACAVIR [Suspect]
     Indication: DRUG USE FOR UNKNOWN INDICATION
     Route: 048
  6. ABACAVIR [Suspect]
     Route: 048
  7. KEPPRA [Concomitant]
     Route: 048

REACTIONS (5)
  - CHOKING [None]
  - MEDICATION ERROR [None]
  - PHARMACEUTICAL PRODUCT COMPLAINT [None]
  - TREATMENT NONCOMPLIANCE [None]
  - VOMITING [None]
